FAERS Safety Report 4295129-5 (Version None)
Quarter: 2004Q1

REPORT INFORMATION
  Report Type: 
  Country: None (occurrence: None)
  Receive Date: 20040216
  Receipt Date: 20031103
  Transmission Date: 20041129
  Serious: Yes (Other)
  Sender: FDA-Public Use
  Company Number: FR-GLAXOSMITHKLINE-B0313756A

PATIENT
  Age: 60 Year
  Sex: Female
  Weight: 70 kg

DRUGS (3)
  1. SEREVENT [Suspect]
     Indication: ASTHMA
     Route: 055
  2. BECOTIDE [Suspect]
     Indication: ASTHMA
     Route: 055
  3. LANZOR [Concomitant]
     Indication: GASTROOESOPHAGEAL REFLUX DISEASE
     Dosage: 15MG PER DAY
     Route: 048

REACTIONS (11)
  - BLOOD PRESSURE INCREASED [None]
  - BRONCHOSPASM [None]
  - DRUG HYPERSENSITIVITY [None]
  - FEELING ABNORMAL [None]
  - MALAISE [None]
  - MEDICAL DEVICE COMPLICATION [None]
  - NAUSEA [None]
  - OBSTRUCTIVE AIRWAYS DISORDER [None]
  - PHARMACEUTICAL PRODUCT COMPLAINT [None]
  - SENSE OF OPPRESSION [None]
  - VERTIGO [None]
